FAERS Safety Report 24977031 (Version 2)
Quarter: 2025Q2

REPORT INFORMATION
  Report Type: Spontaneous
  Country: US (occurrence: US)
  Receive Date: 20250217
  Receipt Date: 20250421
  Transmission Date: 20250717
  Serious: Yes (Hospitalization, Other)
  Sender: ADMA BIOLOGICS
  Company Number: US-ADMA BIOLOGICS INC.-US-2025ADM000058

PATIENT
  Age: 50 Year
  Sex: Female

DRUGS (8)
  1. HUMAN IMMUNOGLOBULIN G [Suspect]
     Active Substance: HUMAN IMMUNOGLOBULIN G
     Indication: Immune thrombocytopenia
     Route: 042
  2. HUMAN IMMUNOGLOBULIN G [Suspect]
     Active Substance: HUMAN IMMUNOGLOBULIN G
     Route: 042
  3. DEXAMETHASONE [Suspect]
     Active Substance: DEXAMETHASONE
     Indication: Immune thrombocytopenia
     Route: 042
  4. DEXAMETHASONE [Suspect]
     Active Substance: DEXAMETHASONE
     Route: 042
  5. RITUXIMAB [Suspect]
     Active Substance: RITUXIMAB
     Indication: Thrombocytopenia
     Dosage: 375 MG/M2, WEEKLY ( WEEK1-4)
     Route: 042
  6. ELTROMBOPAG [Suspect]
     Active Substance: ELTROMBOPAG
     Indication: Thrombocytopenia
     Dosage: 50 MG, QD FOR 14 DAYS  ( WEEK 2-4)
     Route: 048
  7. AVATROMBOPAG [Suspect]
     Active Substance: AVATROMBOPAG
     Indication: Thrombocytopenia
     Dosage: 20 MG, QD FOR 14DAYS ,
     Route: 048
  8. AVATROMBOPAG [Suspect]
     Active Substance: AVATROMBOPAG
     Dosage: 40 MG, QD FOR 8 DAYS
     Route: 048

REACTIONS (6)
  - Subarachnoid haemorrhage [Unknown]
  - Haemorrhage intracranial [Unknown]
  - Deep vein thrombosis [Unknown]
  - Fall [Recovered/Resolved]
  - Confusional state [Unknown]
  - Off label use [Unknown]
